FAERS Safety Report 7809251-7 (Version None)
Quarter: 2011Q4

REPORT INFORMATION
  Report Type: 
  Country: None (occurrence: None)
  Receive Date: 20111006
  Receipt Date: 20110928
  Transmission Date: 20120403
  Serious: Yes (Death, Other)
  Sender: FDA-Public Use
  Company Number: AUR-APL-2011-02947

PATIENT
  Age: 82 Year
  Sex: Male

DRUGS (10)
  1. ISMN (ISORBIDE MONONITRATE) [Concomitant]
  2. ASPIRIN [Concomitant]
  3. LEVETIRACETAM [Concomitant]
  4. RAMIPRIL [Concomitant]
  5. METFORMIN HCL [Suspect]
     Indication: PRODUCT USED FOR UNKNOWN INDICATION
     Dosage: 2550 (850 MG, 3 IN 1 D) ORAL
     Route: 048
     Dates: start: 20110309
  6. CO-AMOXICLAV (AUGMENTIN /00756801/ ) [Concomitant]
  7. AMITRIPTYLINE HCL [Concomitant]
  8. INDORAMIN [Concomitant]
  9. SIMVASTATIN [Concomitant]
  10. FUROSEMIDE [Concomitant]

REACTIONS (5)
  - LACTIC ACIDOSIS [None]
  - DIARRHOEA [None]
  - VOMITING [None]
  - RENAL FAILURE [None]
  - DEHYDRATION [None]
